FAERS Safety Report 8254990-X (Version None)
Quarter: 2012Q2

REPORT INFORMATION
  Report Type: 
  Country: None (occurrence: None)
  Receive Date: 20120403
  Receipt Date: 20120320
  Transmission Date: 20120825
  Serious: No
  Sender: FDA-Public Use
  Company Number: US-JNJFOC-20120310651

PATIENT

DRUGS (1)
  1. FENTANYL [Suspect]
     Indication: PAIN
     Route: 062

REACTIONS (5)
  - BLISTER [None]
  - SKIN EXFOLIATION [None]
  - DRUG ADMINISTERED AT INAPPROPRIATE SITE [None]
  - BURNING SENSATION [None]
  - DRUG INEFFECTIVE [None]
